FAERS Safety Report 7709110-4 (Version None)
Quarter: 2011Q3

REPORT INFORMATION
  Report Type: 
  Country: None (occurrence: None)
  Receive Date: 20110825
  Receipt Date: 20110815
  Transmission Date: 20111222
  Serious: Yes (Other)
  Sender: FDA-Public Use
  Company Number: PHHY2011CA74180

PATIENT
  Sex: Female

DRUGS (3)
  1. ZOMETA [Suspect]
     Indication: BREAST CANCER
     Dosage: 04 MG EVERY 04 WEEKS
     Dates: start: 20110201
  2. RADIATION THERAPY [Concomitant]
     Dosage: UNK UKN, UNK
     Dates: start: 20110427
  3. ZOMETA [Suspect]
     Dosage: 04 MG EVERY 04 WEEKS
     Dates: start: 20110501

REACTIONS (2)
  - FEELING DRUNK [None]
  - HYPERSOMNIA [None]
